FAERS Safety Report 24981460 (Version 1)
Quarter: 2025Q1

REPORT INFORMATION
  Report Type: Spontaneous
  Country: CN (occurrence: CN)
  Receive Date: 20250218
  Receipt Date: 20250218
  Transmission Date: 20250409
  Serious: Yes (Other)
  Sender: ROCHE
  Company Number: CN-ROCHE-10000203409

PATIENT
  Age: 71 Year
  Sex: Male

DRUGS (3)
  1. BEVACIZUMAB [Suspect]
     Active Substance: BEVACIZUMAB
     Indication: Rectal adenocarcinoma
     Route: 065
  2. SUNVOZERTINIB [Concomitant]
     Active Substance: SUNVOZERTINIB
     Indication: Lung neoplasm malignant
  3. CAPECITABINE [Concomitant]
     Active Substance: CAPECITABINE
     Indication: Colon cancer
     Route: 048

REACTIONS (9)
  - Gastrointestinal haemorrhage [Recovering/Resolving]
  - Sepsis [Recovering/Resolving]
  - Shock [Unknown]
  - Decreased appetite [Recovering/Resolving]
  - Rash [Unknown]
  - Paronychia [Unknown]
  - Nausea [Recovering/Resolving]
  - Weight decreased [Recovering/Resolving]
  - Cachexia [Recovering/Resolving]
